FAERS Safety Report 24150377 (Version 2)
Quarter: 2024Q4

REPORT INFORMATION
  Report Type: Spontaneous
  Country: FR (occurrence: FR)
  Receive Date: 20240730
  Receipt Date: 20241014
  Transmission Date: 20250115
  Serious: No
  Sender: SANOFI AVENTIS
  Company Number: FR-SA-SAC20240417000937

PATIENT
  Age: 1 Month
  Sex: Female

DRUGS (1)
  1. MYOZYME [Suspect]
     Active Substance: ALGLUCOSIDASE ALFA
     Dosage: 40 MG/KG, QW
     Route: 065
     Dates: start: 202401, end: 20240503

REACTIONS (3)
  - Therapeutic response decreased [Unknown]
  - Inappropriate schedule of product administration [Unknown]
  - Incorrect dose administered [Unknown]

NARRATIVE: CASE EVENT DATE: 20240101
